FAERS Safety Report 14885724 (Version 4)
Quarter: 2018Q2

REPORT INFORMATION
  Report Type: Spontaneous
  Country: IT (occurrence: IT)
  Receive Date: 20180511
  Receipt Date: 20180605
  Transmission Date: 20180711
  Serious: Yes (Hospitalization)
  Sender: FDA-Public Use
  Company Number: IT-B.I. PHARMACEUTICALS,INC./RIDGEFIELD-2018-12-001686

PATIENT
  Age: 74 Year
  Sex: Male

DRUGS (3)
  1. CLONIDINE. [Suspect]
     Active Substance: CLONIDINE
     Indication: WOUND
     Dosage: IN TOTAL
     Route: 042
     Dates: start: 20180415
  2. CEFTRIAXONE. [Suspect]
     Active Substance: CEFTRIAXONE
     Indication: WOUND
     Dosage: ; IN TOTAL
     Route: 042
     Dates: start: 20180415
  3. DIPHTHERIA AND TETANUS TOXOIDS ADSORBED NOS [Suspect]
     Active Substance: CLOSTRIDIUM TETANI TOXOID ANTIGEN (FORMALDEHYDE INACTIVATED)\CORYNEBACTERIUM DIPHTHERIAE TOXOID ANTIGEN (FORMALDEHYDE INACTIVATED)\DIPHTHERIA AND TETANUS TOXOIDS ADSORBED
     Indication: WOUND
     Route: 030
     Dates: start: 20180415

REACTIONS (3)
  - Rash [Recovering/Resolving]
  - Throat irritation [Recovering/Resolving]
  - Cardiac arrest [Recovering/Resolving]

NARRATIVE: CASE EVENT DATE: 20180415
